FAERS Safety Report 9295554 (Version 1)
Quarter: 2013Q2

REPORT INFORMATION
  Report Type: Spontaneous
  Country: US (occurrence: US)
  Receive Date: 20130517
  Receipt Date: 20130517
  Transmission Date: 20140414
  Serious: Yes (Other)
  Sender: FDA-Public Use
  Company Number: US-PFIZER INC-2013149931

PATIENT
  Sex: Male

DRUGS (1)
  1. PRIMATENE [Suspect]
     Dosage: UNK

REACTIONS (4)
  - Eye disorder [Unknown]
  - Vision blurred [Unknown]
  - Visual impairment [Unknown]
  - Weight increased [Unknown]
